FAERS Safety Report 6626720-6 (Version None)
Quarter: 2010Q1

REPORT INFORMATION
  Report Type: 
  Country: None (occurrence: None)
  Receive Date: 20100311
  Receipt Date: 20100224
  Transmission Date: 20100710
  Serious: Yes (Other)
  Sender: FDA-Public Use
  Company Number: KR-GENENTECH-298908

PATIENT
  Age: 17 Year
  Sex: Male

DRUGS (1)
  1. LUCENTIS [Suspect]
     Indication: CHOROIDAL NEOVASCULARISATION
     Route: 031

REACTIONS (5)
  - ASTIGMATISM [None]
  - CORNEAL OEDEMA [None]
  - EYE PAIN [None]
  - KERATOCONUS [None]
  - VISUAL ACUITY REDUCED [None]
